FAERS Safety Report 13388317 (Version 1)
Quarter: 2017Q1

REPORT INFORMATION
  Report Type: Spontaneous
  Country: US (occurrence: US)
  Receive Date: 20170330
  Receipt Date: 20170330
  Transmission Date: 20170429
  Serious: No
  Sender: FDA-Public Use
  Company Number: US-GLAXOSMITHKLINE-US2017044420

PATIENT
  Sex: Female

DRUGS (1)
  1. ADVAIR DISKUS [Suspect]
     Active Substance: FLUTICASONE PROPIONATE\SALMETEROL XINAFOATE
     Indication: ASTHMA
     Route: 055

REACTIONS (9)
  - Nausea [Unknown]
  - Hyperhidrosis [Unknown]
  - Decreased appetite [Unknown]
  - Abdominal discomfort [Unknown]
  - Nervousness [Unknown]
  - Chills [Unknown]
  - Heart rate increased [Unknown]
  - Headache [Unknown]
  - Muscle spasms [Unknown]
